FAERS Safety Report 25073442 (Version 1)
Quarter: 2025Q1

REPORT INFORMATION
  Report Type: Spontaneous
  Country: US (occurrence: None)
  Receive Date: 20250312
  Receipt Date: 20250312
  Transmission Date: 20250409
  Serious: Yes (Disabling, Other)
  Sender: FDA-CTU
  Company Number: None

PATIENT
  Age: 49 Year
  Sex: Male
  Weight: 117 kg

DRUGS (8)
  1. DULOXETINE [Suspect]
     Active Substance: DULOXETINE
     Indication: Pain
     Dosage: OTHER QUANTITY : 1 CAPSULE(S);?FREQUENCY : DAILY;?
     Route: 048
     Dates: start: 20191201, end: 20250223
  2. DULOXETINE [Suspect]
     Active Substance: DULOXETINE
     Indication: Affective disorder
  3. PANTOPRAZOLE [Concomitant]
     Active Substance: PANTOPRAZOLE
  4. CELECOXIB [Concomitant]
     Active Substance: CELECOXIB
  5. ROSUVASTATIN [Concomitant]
     Active Substance: ROSUVASTATIN
  6. SEMAGLUTIDE [Concomitant]
     Active Substance: SEMAGLUTIDE
  7. CYCLOBENZAPRINE [Concomitant]
     Active Substance: CYCLOBENZAPRINE
  8. DEVICE [Concomitant]
     Active Substance: DEVICE

REACTIONS (12)
  - Suicidal ideation [None]
  - Withdrawal syndrome [None]
  - Treatment noncompliance [None]
  - Memory impairment [None]
  - Abnormal behaviour [None]
  - Irritability [None]
  - Photophobia [None]
  - Tinnitus [None]
  - Headache [None]
  - Dry mouth [None]
  - Disturbance in attention [None]
  - Amnesia [None]

NARRATIVE: CASE EVENT DATE: 20241224
